FAERS Safety Report 6756366-0 (Version None)
Quarter: 2010Q2

REPORT INFORMATION
  Report Type: 
  Country: None (occurrence: None)
  Receive Date: 20100604
  Receipt Date: 20100531
  Transmission Date: 20101027
  Serious: Yes (Other)
  Sender: FDA-Public Use
  Company Number: GB-ROCHE-706945

PATIENT
  Age: 46 Year
  Sex: Male

DRUGS (2)
  1. CLONAZEPAM [Suspect]
     Indication: DRUG USE FOR UNKNOWN INDICATION
     Route: 065
     Dates: start: 20061101
  2. DIAZEPAM [Suspect]
     Indication: DRUG USE FOR UNKNOWN INDICATION
     Route: 065

REACTIONS (9)
  - CONSTIPATION [None]
  - DECREASED APPETITE [None]
  - DYSPEPSIA [None]
  - FAECAL INCONTINENCE [None]
  - HYPOPHAGIA [None]
  - INCORRECT DOSE ADMINISTERED [None]
  - INFREQUENT BOWEL MOVEMENTS [None]
  - MUSCULOSKELETAL STIFFNESS [None]
  - VOMITING [None]
